FAERS Safety Report 22053348 (Version 3)
Quarter: 2023Q1

REPORT INFORMATION
  Report Type: Spontaneous
  Country: AU (occurrence: AU)
  Receive Date: 20230302
  Receipt Date: 20230320
  Transmission Date: 20230417
  Serious: Yes (Disabling, Other)
  Sender: FDA-Public Use
  Company Number: AU-GILEAD-2023-0618101

PATIENT
  Age: 71 Year
  Sex: Male

DRUGS (12)
  1. VIREAD [Suspect]
     Active Substance: TENOFOVIR DISOPROXIL FUMARATE
     Indication: Hepatic cirrhosis
     Dosage: UNK
     Route: 065
  2. ASPIRIN [Concomitant]
     Active Substance: ASPIRIN
     Indication: Myocardial ischaemia
     Dosage: 100 MG
     Route: 048
     Dates: start: 20220222
  3. ATORVASTATIN [Concomitant]
     Active Substance: ATORVASTATIN
     Indication: Dyslipidaemia
     Dosage: 40 MG
     Route: 048
     Dates: start: 20220609
  4. CHOLECALCIFEROL [Concomitant]
     Active Substance: CHOLECALCIFEROL
     Indication: Osteoporosis
     Dosage: UNK (25 MCG)
     Route: 048
     Dates: start: 20220222
  5. DUTASTERIDE\TAMSULOSIN [Concomitant]
     Active Substance: DUTASTERIDE\TAMSULOSIN
     Indication: Benign prostatic hyperplasia
     Dosage: UNK (500 MCG/400 MCG)
     Route: 048
     Dates: start: 20130520
  6. LANSOPRAZOLE [Concomitant]
     Active Substance: LANSOPRAZOLE
     Indication: Gastrooesophageal reflux disease
     Dosage: 30 MG
     Route: 048
     Dates: start: 20220222
  7. VITAMINS NOS [Concomitant]
     Active Substance: VITAMINS
     Dosage: 1 DOSAGE FORM (TABLET)
     Route: 048
     Dates: start: 20220222
  8. NOVORAPID [Concomitant]
     Active Substance: INSULIN ASPART
     Indication: Type 2 diabetes mellitus
     Dosage: 4 DOSAGE FORM (4 UNITS)
     Route: 058
     Dates: start: 20220609
  9. OPTISULIN [INSULIN DEFALAN] [Concomitant]
     Indication: Type 2 diabetes mellitus
     Dosage: 10 DOSAGE FORM (10 UNITS)
     Route: 058
     Dates: start: 20220901
  10. SODIUM PHOSPHATE [Concomitant]
     Active Substance: SODIUM PHOSPHATE
  11. TACROLIMUS [Concomitant]
     Active Substance: TACROLIMUS
     Indication: Liver transplant
     Dosage: 0.5 MG
     Route: 048
     Dates: start: 20220901
  12. THIAMINE [Concomitant]
     Active Substance: THIAMINE
     Indication: Malnutrition
     Dosage: 100 MG
     Route: 048
     Dates: start: 20220222

REACTIONS (3)
  - Nephropathy toxic [Unknown]
  - Chronic kidney disease [Unknown]
  - Fanconi syndrome acquired [Unknown]

NARRATIVE: CASE EVENT DATE: 20230221
